FAERS Safety Report 4994170-4 (Version None)
Quarter: 2006Q2

REPORT INFORMATION
  Report Type: 
  Country: None (occurrence: None)
  Receive Date: 20060503
  Receipt Date: 20060421
  Transmission Date: 20061013
  Serious: Yes (Other)
  Sender: FDA-Public Use
  Company Number: 2006JP000067

PATIENT
  Age: 55 Year
  Sex: Female
  Weight: 45 kg

DRUGS (6)
  1. TACROLIMUS [Suspect]
     Indication: RHEUMATOID ARTHRITIS
     Dosage: 3 MG, D, ORAL
     Route: 048
     Dates: start: 20050525
  2. PREDNISOLONE [Suspect]
     Indication: RHEUMATOID ARTHRITIS
     Dosage: 1 MG, QOD, ORAL
     Route: 048
  3. OSTELUC (ETODOLAC) [Concomitant]
  4. VOLTAREN (DICLOFENAC POTASSIUM) SUPPOSITORY [Concomitant]
  5. VOLTAREN [Concomitant]
  6. MUCOSTA (REBAMIPIDE) [Concomitant]

REACTIONS (4)
  - BLOOD GLUCOSE INCREASED [None]
  - NODAL MARGINAL ZONE B-CELL LYMPHOMA [None]
  - RHEUMATOID ARTHRITIS [None]
  - SJOGREN'S SYNDROME [None]
